FAERS Safety Report 6307367-8 (Version None)
Quarter: 2009Q3

REPORT INFORMATION
  Report Type: 
  Country: None (occurrence: None)
  Receive Date: 20090807
  Receipt Date: 20081204
  Transmission Date: 20100115
  Serious: Yes (Other)
  Sender: FDA-Public Use
  Company Number: US-JNJFOC-20081201767

PATIENT
  Age: 12 Month
  Sex: Male
  Weight: 10.4327 kg

DRUGS (1)
  1. IBUPROFEN [Suspect]
     Indication: TEETHING
     Dosage: 1 DOSE(S), 2 IN 1 DAY, ORAL
     Route: 048
     Dates: start: 20081203, end: 20081203

REACTIONS (1)
  - HYPERSENSITIVITY [None]
